FAERS Safety Report 16798736 (Version 1)
Quarter: 2019Q4

REPORT INFORMATION
  Report Type: Spontaneous
  Country: US (occurrence: US)
  Receive Date: 20190911
  Receipt Date: 20190911
  Transmission Date: 20200122
  Serious: No
  Sender: FDA-Public Use
  Company Number: None

PATIENT
  Sex: Male

DRUGS (2)
  1. SEVELAMER [Suspect]
     Active Substance: SEVELAMER
  2. SEVELAMER [Suspect]
     Active Substance: SEVELAMER

REACTIONS (2)
  - Abdominal pain [None]
  - Constipation [None]
